FAERS Safety Report 13332567 (Version 5)
Quarter: 2018Q3

REPORT INFORMATION
  Report Type: Spontaneous
  Country: GB (occurrence: GB)
  Receive Date: 20170314
  Receipt Date: 20180726
  Transmission Date: 20181010
  Serious: Yes (Hospitalization, Other)
  Sender: FDA-Public Use
  Company Number: GB-CONCORDIA PHARMACEUTICALS INC.-E2B_00008064

PATIENT
  Age: 32 Year
  Sex: Female

DRUGS (7)
  1. AZATHIOPRINE. [Suspect]
     Active Substance: AZATHIOPRINE
     Dates: start: 2011
  2. PREDNISOLONE. [Suspect]
     Active Substance: PREDNISOLONE
     Dates: start: 201509
  3. PREDNISOLONE. [Suspect]
     Active Substance: PREDNISOLONE
     Indication: DERMATOMYOSITIS
     Dosage: LOW?DOSE
     Dates: start: 201501, end: 201509
  4. RITUXIMAB. [Suspect]
     Active Substance: RITUXIMAB
     Dates: start: 201501
  5. RITUXIMAB. [Suspect]
     Active Substance: RITUXIMAB
     Indication: DERMATOMYOSITIS
     Dates: start: 201305
  6. RITUXIMAB. [Suspect]
     Active Substance: RITUXIMAB
     Dates: start: 201403
  7. AZATHIOPRINE. [Suspect]
     Active Substance: AZATHIOPRINE
     Indication: DERMATOMYOSITIS
     Dates: start: 201501, end: 201509

REACTIONS (6)
  - Pancytopenia [Recovered/Resolved]
  - Encephalitis viral [Recovered/Resolved]
  - Anterograde amnesia [Recovering/Resolving]
  - Pleocytosis [Recovered/Resolved]
  - Human herpesvirus 6 infection [Recovered/Resolved]
  - B-lymphocyte count decreased [Recovered/Resolved]

NARRATIVE: CASE EVENT DATE: 2015
